FAERS Safety Report 7096687-8 (Version None)
Quarter: 2010Q4

REPORT INFORMATION
  Report Type: 
  Country: None (occurrence: None)
  Receive Date: 20101111
  Receipt Date: 20080317
  Transmission Date: 20110411
  Serious: No
  Sender: FDA-Public Use
  Company Number: US-KINGPHARMUSA00001-K200800319

PATIENT
  Age: 39 Year
  Sex: Female

DRUGS (5)
  1. SKELAXIN [Suspect]
     Indication: NECK PAIN
     Dosage: 400 MG, BID
     Route: 048
     Dates: start: 20080307, end: 20080313
  2. SUDAFED   /00076302/ [Concomitant]
     Indication: HYPERSENSITIVITY
     Dosage: UNK, PRN
     Route: 048
  3. ALLEGRA [Concomitant]
     Indication: HYPERSENSITIVITY
     Dosage: UNK, QD
     Route: 048
  4. CLARITIN     /00917501/ [Concomitant]
     Indication: HYPERSENSITIVITY
     Dosage: UNK, QD
     Route: 048
  5. RHINOCORT [Concomitant]
     Indication: HYPERSENSITIVITY
     Dosage: UNK, QD
     Route: 045

REACTIONS (1)
  - VAGINAL HAEMORRHAGE [None]
